FAERS Safety Report 25886173 (Version 1)
Quarter: 2025Q4

REPORT INFORMATION
  Report Type: Spontaneous
  Country: US (occurrence: US)
  Receive Date: 20251006
  Receipt Date: 20251006
  Transmission Date: 20260117
  Serious: Yes (Other)
  Sender: BAYER HEALTHCARE LLC
  Company Number: US-BAYER-2025A130067

PATIENT
  Sex: Male

DRUGS (1)
  1. TINACTIN [Suspect]
     Active Substance: TOLNAFTATE
     Dosage: UNK UNK, QD
     Route: 055

REACTIONS (6)
  - Mesothelioma malignant [None]
  - Lung neoplasm malignant [None]
  - Abdominal neoplasm [None]
  - Exposure to chemical pollution [None]
  - Asbestosis [None]
  - Injury [None]

NARRATIVE: CASE EVENT DATE: 20210101
